FAERS Safety Report 14855029 (Version 2)
Quarter: 2021Q2

REPORT INFORMATION
  Report Type: Spontaneous
  Country: US (occurrence: US)
  Receive Date: 20180507
  Receipt Date: 20210505
  Transmission Date: 20210716
  Serious: No
  Sender: FDA-Public Use
  Company Number: US-ROCHE-1922193

PATIENT
  Sex: Male

DRUGS (7)
  1. LEVAQUIN [Concomitant]
     Active Substance: LEVOFLOXACIN
  2. MACROBID [Concomitant]
     Active Substance: NITROFURANTOIN\NITROFURANTOIN MONOHYDRATE
  3. PREDNISONE. [Concomitant]
     Active Substance: PREDNISONE
  4. ESBRIET [Suspect]
     Active Substance: PIRFENIDONE
     Indication: IDIOPATHIC PULMONARY FIBROSIS
     Dosage: TAKE 3 CAPSULES BY MOUTH 3 TIMES A DAY WITH FOOD; ONGOING:YES
     Route: 048
     Dates: start: 20161212
  5. BENZONATATE. [Concomitant]
     Active Substance: BENZONATATE
  6. DILTIAZEM CD [Concomitant]
     Active Substance: DILTIAZEM
  7. ESBRIET [Suspect]
     Active Substance: PIRFENIDONE
     Dosage: 3 CAPSULES
     Route: 048
     Dates: start: 20161214

REACTIONS (1)
  - Fatigue [Not Recovered/Not Resolved]
